FAERS Safety Report 5947019-7 (Version None)
Quarter: 2008Q4

REPORT INFORMATION
  Report Type: 
  Country: None (occurrence: None)
  Receive Date: 20081106
  Receipt Date: 20081027
  Transmission Date: 20090506
  Serious: Yes (Hospitalization)
  Sender: FDA-Public Use
  Company Number: 2008BI011229

PATIENT
  Age: 56 Year
  Sex: Female

DRUGS (4)
  1. AVONEX [Suspect]
     Indication: MULTIPLE SCLEROSIS
     Dosage: 30 UG;QW;IM, IM
     Route: 030
     Dates: start: 20060108, end: 20080401
  2. AVONEX [Suspect]
     Indication: MULTIPLE SCLEROSIS
     Dosage: 30 UG;QW;IM, IM
     Route: 030
     Dates: start: 20080522
  3. , [Concomitant]
  4. . [Concomitant]

REACTIONS (2)
  - BREAST CANCER RECURRENT [None]
  - POSTOPERATIVE WOUND INFECTION [None]
